FAERS Safety Report 9245109 (Version 1)
Quarter: 2013Q1

REPORT INFORMATION
  Report Type: Spontaneous
  Country: US (occurrence: None)
  Receive Date: 20121130
  Receipt Date: 20121130
  Transmission Date: 20140127
  Serious: Yes (Other)
  Sender: FDA-Public Use
  Company Number: 354322

PATIENT
  Age: 32 Year
  Sex: Female
  Weight: 97.5 kg

DRUGS (1)
  1. NOVOLOG [Suspect]
     Indication: TYPE 2 DIABETES MELLITUS
     Dosage: 2002 TO ONGOING, SOLUTION FOR INJECTION, 16.75 UNITS (BASAL RATE), SUBCUTAN.-PUMP

REACTIONS (1)
  - Hyperglycaemia [None]
